FAERS Safety Report 22163807 (Version 2)
Quarter: 2023Q2

REPORT INFORMATION
  Report Type: Report from Study
  Country: US (occurrence: US)
  Receive Date: 20230401
  Receipt Date: 20230612
  Transmission Date: 20230721
  Serious: No
  Sender: FDA-Public Use
  Company Number: US-002147023-NVSC2023US074940

PATIENT
  Sex: Female

DRUGS (1)
  1. COSENTYX [Suspect]
     Active Substance: SECUKINUMAB
     Indication: Ankylosing spondylitis
     Dosage: 150 MG, (QW EVERY 0,1,2,3,4), AFTER THAT EVERY 4 WEEKS
     Route: 058

REACTIONS (2)
  - Headache [Recovered/Resolved]
  - Illness [Unknown]
